FAERS Safety Report 19037483 (Version 4)
Quarter: 2021Q3

REPORT INFORMATION
  Report Type: Report from Study
  Country: None (occurrence: US)
  Receive Date: 20210322
  Receipt Date: 20210731
  Transmission Date: 20211014
  Serious: Yes (Hospitalization, Other)
  Sender: FDA-Public Use
  Company Number: US-ABBVIE-21K-163-3820226-00

PATIENT
  Age: 57 Year
  Sex: Female

DRUGS (67)
  1. PIOGLITAZONE. [Concomitant]
     Active Substance: PIOGLITAZONE
     Indication: DIABETES MELLITUS
  2. CURCUMIN [Concomitant]
     Active Substance: CURCUMIN
     Indication: INFLAMMATION
  3. VITAMIN E NOS [Concomitant]
     Active Substance: .ALPHA.-TOCOPHEROL
     Indication: PRODUCT USED FOR UNKNOWN INDICATION
  4. VITAMIN B12 [Concomitant]
     Active Substance: CYANOCOBALAMIN
     Indication: PRODUCT USED FOR UNKNOWN INDICATION
  5. MAGNESIUM [Concomitant]
     Active Substance: MAGNESIUM
     Indication: PRODUCT USED FOR UNKNOWN INDICATION
  6. TURMERIC [Concomitant]
     Active Substance: HERBALS\TURMERIC
     Indication: PRODUCT USED FOR UNKNOWN INDICATION
  7. PIOGLITAZONE. [Concomitant]
     Active Substance: PIOGLITAZONE
     Indication: CARDIAC DISORDER
  8. CURCUMIN [Concomitant]
     Active Substance: CURCUMIN
     Indication: DIABETES MELLITUS
  9. ZINC. [Concomitant]
     Active Substance: ZINC
     Indication: DEPRESSION
  10. VITAMIN E NOS [Concomitant]
     Active Substance: .ALPHA.-TOCOPHEROL
     Indication: DEPRESSION
  11. VITAMIN D3 [Concomitant]
     Active Substance: CHOLECALCIFEROL
     Indication: CARDIAC DISORDER
  12. VITAMIN D3 [Concomitant]
     Active Substance: CHOLECALCIFEROL
     Indication: DIABETES MELLITUS
  13. VITAMIN D3 [Concomitant]
     Active Substance: CHOLECALCIFEROL
     Indication: INFLAMMATION
  14. VITAMIN B12 [Concomitant]
     Active Substance: CYANOCOBALAMIN
     Indication: PRODUCT USED FOR UNKNOWN INDICATION
  15. MAGNESIUM [Concomitant]
     Active Substance: MAGNESIUM
     Indication: INFLAMMATION
  16. HUMIRA [Suspect]
     Active Substance: ADALIMUMAB
     Indication: RHEUMATOID ARTHRITIS
     Dosage: CITRATE FREE
     Route: 058
     Dates: start: 2015
  17. SPIRONOLACTONE. [Concomitant]
     Active Substance: SPIRONOLACTONE
     Indication: CARDIAC DISORDER
  18. ZINC. [Concomitant]
     Active Substance: ZINC
     Indication: DIABETES MELLITUS
  19. VITAMIN B12 [Concomitant]
     Active Substance: CYANOCOBALAMIN
     Indication: BLOOD CHOLESTEROL
  20. MAGNESIUM [Concomitant]
     Active Substance: MAGNESIUM
     Indication: BLOOD CHOLESTEROL
  21. VITAMIN C [Concomitant]
     Active Substance: ASCORBIC ACID
     Indication: CARDIAC DISORDER
  22. VITAMIN C [Concomitant]
     Active Substance: ASCORBIC ACID
     Indication: BLOOD CHOLESTEROL
  23. ATORVASTATIN [Concomitant]
     Active Substance: ATORVASTATIN
     Indication: BLOOD CHOLESTEROL
  24. CURCUMIN [Concomitant]
     Active Substance: CURCUMIN
     Indication: PRODUCT USED FOR UNKNOWN INDICATION
  25. ZINC. [Concomitant]
     Active Substance: ZINC
     Indication: INFLAMMATION
  26. VITAMIN D3 [Concomitant]
     Active Substance: CHOLECALCIFEROL
     Indication: PRODUCT USED FOR UNKNOWN INDICATION
  27. MAGNESIUM [Concomitant]
     Active Substance: MAGNESIUM
     Indication: PRODUCT USED FOR UNKNOWN INDICATION
  28. VITAMIN C [Concomitant]
     Active Substance: ASCORBIC ACID
     Indication: PRODUCT USED FOR UNKNOWN INDICATION
  29. ATORVASTATIN [Concomitant]
     Active Substance: ATORVASTATIN
     Indication: BLOOD CHOLESTEROL
  30. ATORVASTATIN [Concomitant]
     Active Substance: ATORVASTATIN
     Indication: CARDIAC DISORDER
  31. ATORVASTATIN [Concomitant]
     Active Substance: ATORVASTATIN
     Indication: DEPRESSION
  32. CURCUMIN [Concomitant]
     Active Substance: CURCUMIN
     Indication: BLOOD CHOLESTEROL
  33. VITAMIN E NOS [Concomitant]
     Active Substance: .ALPHA.-TOCOPHEROL
     Indication: DIABETES MELLITUS
  34. HUMIRA [Suspect]
     Active Substance: ADALIMUMAB
     Dosage: CITRATE FREE
     Route: 058
     Dates: end: 202106
  35. ANORO [Concomitant]
     Active Substance: UMECLIDINIUM BROMIDE\VILANTEROL TRIFENATATE
     Indication: RESPIRATORY DISORDER
  36. FUROSEMIDE. [Concomitant]
     Active Substance: FUROSEMIDE
     Indication: FLUID RETENTION
  37. FUROSEMIDE. [Concomitant]
     Active Substance: FUROSEMIDE
     Indication: CARDIAC DISORDER
  38. ZINC. [Concomitant]
     Active Substance: ZINC
     Indication: CARDIAC DISORDER
  39. ZINC. [Concomitant]
     Active Substance: ZINC
     Indication: BLOOD CHOLESTEROL
  40. ZINC. [Concomitant]
     Active Substance: ZINC
     Indication: PRODUCT USED FOR UNKNOWN INDICATION
  41. VITAMIN E NOS [Concomitant]
     Active Substance: .ALPHA.-TOCOPHEROL
     Indication: INFLAMMATION
  42. VITAMIN D3 [Concomitant]
     Active Substance: CHOLECALCIFEROL
     Indication: BLOOD CHOLESTEROL
  43. VITAMIN B12 [Concomitant]
     Active Substance: CYANOCOBALAMIN
     Indication: CARDIAC DISORDER
  44. MAGNESIUM [Concomitant]
     Active Substance: MAGNESIUM
     Indication: CARDIAC DISORDER
  45. MAGNESIUM [Concomitant]
     Active Substance: MAGNESIUM
     Indication: DIABETES MELLITUS
  46. VITAMIN C [Concomitant]
     Active Substance: ASCORBIC ACID
     Indication: DEPRESSION
  47. VITAMIN C [Concomitant]
     Active Substance: ASCORBIC ACID
     Indication: INFLAMMATION
  48. SPIRONOLACTONE. [Concomitant]
     Active Substance: SPIRONOLACTONE
     Indication: CARDIAC DISORDER
  49. ATORVASTATIN [Concomitant]
     Active Substance: ATORVASTATIN
     Indication: DIABETES MELLITUS
  50. CURCUMIN [Concomitant]
     Active Substance: CURCUMIN
     Indication: CARDIAC DISORDER
  51. VITAMIN E NOS [Concomitant]
     Active Substance: .ALPHA.-TOCOPHEROL
     Indication: BLOOD CHOLESTEROL
  52. VITAMIN E NOS [Concomitant]
     Active Substance: .ALPHA.-TOCOPHEROL
     Indication: PRODUCT USED FOR UNKNOWN INDICATION
  53. VITAMIN D3 [Concomitant]
     Active Substance: CHOLECALCIFEROL
     Indication: DEPRESSION
  54. VITAMIN B12 [Concomitant]
     Active Substance: CYANOCOBALAMIN
     Indication: INFLAMMATION
  55. MAGNESIUM [Concomitant]
     Active Substance: MAGNESIUM
     Indication: DEPRESSION
  56. VITAMIN C [Concomitant]
     Active Substance: ASCORBIC ACID
     Indication: DIABETES MELLITUS
  57. ESCITALOPRAM [Concomitant]
     Active Substance: ESCITALOPRAM OXALATE
     Indication: DEPRESSION
  58. CURCUMIN [Concomitant]
     Active Substance: CURCUMIN
     Indication: DEPRESSION
  59. CURCUMIN [Concomitant]
     Active Substance: CURCUMIN
     Indication: INFLAMMATION
  60. ZINC. [Concomitant]
     Active Substance: ZINC
     Indication: PRODUCT USED FOR UNKNOWN INDICATION
  61. VITAMIN E NOS [Concomitant]
     Active Substance: .ALPHA.-TOCOPHEROL
     Indication: CARDIAC DISORDER
  62. VITAMIN D3 [Concomitant]
     Active Substance: CHOLECALCIFEROL
     Indication: PRODUCT USED FOR UNKNOWN INDICATION
  63. VITAMIN B12 [Concomitant]
     Active Substance: CYANOCOBALAMIN
     Indication: DEPRESSION
  64. VITAMIN B12 [Concomitant]
     Active Substance: CYANOCOBALAMIN
     Indication: DIABETES MELLITUS
  65. VITAMIN C [Concomitant]
     Active Substance: ASCORBIC ACID
     Indication: PRODUCT USED FOR UNKNOWN INDICATION
  66. CARVEDILOL. [Concomitant]
     Active Substance: CARVEDILOL
     Indication: CARDIAC DISORDER
  67. GLIPIZIDE. [Concomitant]
     Active Substance: GLIPIZIDE
     Indication: DIABETES MELLITUS

REACTIONS (6)
  - Respiratory disorder [Recovering/Resolving]
  - Joint injury [Unknown]
  - Pulmonary hypertension [Recovering/Resolving]
  - Fall [Unknown]
  - Cardiac failure congestive [Recovering/Resolving]
  - Arthralgia [Recovering/Resolving]

NARRATIVE: CASE EVENT DATE: 20201120
